FAERS Safety Report 20758261 (Version 1)
Quarter: 2022Q2

REPORT INFORMATION
  Report Type: Spontaneous
  Country: US (occurrence: US)
  Receive Date: 20220427
  Receipt Date: 20220427
  Transmission Date: 20220720
  Serious: No
  Sender: FDA-Public Use
  Company Number: US-Blueprint Medicines Corporation-29

PATIENT
  Sex: Male

DRUGS (1)
  1. AYVAKIT [Suspect]
     Active Substance: AVAPRITINIB
     Indication: Gastrointestinal stromal tumour
     Dosage: 200MG DAILY
     Route: 048
     Dates: start: 20210104

REACTIONS (5)
  - Hair colour changes [Unknown]
  - Memory impairment [Unknown]
  - Fatigue [Unknown]
  - Insomnia [Unknown]
  - Product dose omission issue [Unknown]
